FAERS Safety Report 13011529 (Version 4)
Quarter: 2018Q1

REPORT INFORMATION
  Report Type: Report from Study
  Country: CA (occurrence: CA)
  Receive Date: 20161209
  Receipt Date: 20180221
  Transmission Date: 20180508
  Serious: Yes (Other)
  Sender: FDA-Public Use
  Company Number: CA-ROCHE-1865218

PATIENT
  Age: 42 Year
  Sex: Female

DRUGS (4)
  1. REACTINE (CANADA) [Concomitant]
     Active Substance: CETIRIZINE HYDROCHLORIDE
     Indication: CHRONIC SPONTANEOUS URTICARIA
     Route: 065
     Dates: end: 2016
  2. XOLAIR [Suspect]
     Active Substance: OMALIZUMAB
     Indication: ASTHMA
     Route: 058
     Dates: start: 20150608, end: 20160505
  3. XOLAIR [Suspect]
     Active Substance: OMALIZUMAB
     Indication: CHRONIC SPONTANEOUS URTICARIA
     Route: 058
     Dates: start: 20150930
  4. VENTOLIN [Concomitant]
     Active Substance: ALBUTEROL SULFATE
     Indication: PRODUCT USED FOR UNKNOWN INDICATION

REACTIONS (12)
  - Pharyngeal oedema [Recovering/Resolving]
  - Asthma [Not Recovered/Not Resolved]
  - Skin discolouration [Unknown]
  - Swollen tongue [Recovering/Resolving]
  - Urticaria [Recovering/Resolving]
  - Swelling face [Unknown]
  - Lip swelling [Unknown]
  - Rash [Unknown]
  - Oedema [Unknown]
  - Inflammation [Unknown]
  - Angioedema [Recovering/Resolving]
  - Swelling [Unknown]

NARRATIVE: CASE EVENT DATE: 20150608
